FAERS Safety Report 18391705 (Version 1)
Quarter: 2020Q4

REPORT INFORMATION
  Report Type: Spontaneous
  Country: US (occurrence: US)
  Receive Date: 20201016
  Receipt Date: 20201016
  Transmission Date: 20210114
  Serious: Yes (Other)
  Sender: FDA-Public Use
  Company Number: US-SUNOVION-2020SUN002996

PATIENT
  Age: 61 Year
  Sex: Female
  Weight: 54.42 kg

DRUGS (5)
  1. APTIOM [Suspect]
     Active Substance: ESLICARBAZEPINE ACETATE
     Indication: EPILEPSY
     Dosage: 600 MG
     Route: 048
  2. BENTYL [Concomitant]
     Active Substance: DICYCLOMINE HYDROCHLORIDE
     Indication: GASTRIC DISORDER
     Dosage: UNK
  3. ZOFRAN [Concomitant]
     Active Substance: ONDANSETRON HYDROCHLORIDE
     Indication: GASTRIC DISORDER
     Dosage: UNK
  4. APTIOM [Suspect]
     Active Substance: ESLICARBAZEPINE ACETATE
     Indication: PARTIAL SEIZURES
     Dosage: 600 MG
     Route: 048
     Dates: start: 202008
  5. WELLBUTRIN [Concomitant]
     Active Substance: BUPROPION HYDROCHLORIDE
     Dosage: 300 MG, QD
     Route: 048

REACTIONS (11)
  - Alopecia [Not Recovered/Not Resolved]
  - Headache [Not Recovered/Not Resolved]
  - Cataract [Not Recovered/Not Resolved]
  - Pain in extremity [Recovered/Resolved]
  - Therapy cessation [Unknown]
  - Vision blurred [Not Recovered/Not Resolved]
  - Therapeutic product effect increased [Unknown]
  - Arthralgia [Recovered/Resolved]
  - Irritability [Not Recovered/Not Resolved]
  - Confusional state [Not Recovered/Not Resolved]
  - Diplopia [Unknown]

NARRATIVE: CASE EVENT DATE: 202010
